FAERS Safety Report 5729153-X (Version None)
Quarter: 2008Q2

REPORT INFORMATION
  Report Type: 
  Country: None (occurrence: None)
  Receive Date: 20080506
  Receipt Date: 20080424
  Transmission Date: 20081010
  Serious: Yes (Hospitalization)
  Sender: FDA-Public Use
  Company Number: JP-ROCHE-549429

PATIENT
  Sex: Male

DRUGS (6)
  1. TAMIFLU [Suspect]
     Indication: INFLUENZA
     Route: 048
     Dates: start: 20080204, end: 20080204
  2. TAMIFLU [Suspect]
     Route: 048
     Dates: start: 20080205, end: 20080207
  3. PL [Concomitant]
     Dosage: GENERIC REPORTED AS NON-PYRINE COLD PREPARATION.
     Route: 048
     Dates: start: 20080204, end: 20080207
  4. PL [Concomitant]
     Dosage: GENERIC REPORTED AS NON-PYRINE COLD PREPARATION.
     Route: 048
     Dates: start: 20080204, end: 20080207
  5. PL [Concomitant]
     Dosage: GENERIC REPORTED AS NON-PYRINE COLD PREPARATION.
     Route: 048
     Dates: start: 20080204, end: 20080207
  6. PL [Concomitant]
     Dosage: GENERIC REPORTED AS NON-PYRINE COLD PREPARATION.
     Route: 048
     Dates: start: 20080204, end: 20080207

REACTIONS (3)
  - HEPATIC FUNCTION ABNORMAL [None]
  - PLATELET COUNT DECREASED [None]
  - WHITE BLOOD CELL COUNT DECREASED [None]
